FAERS Safety Report 15784088 (Version 1)
Quarter: 2019Q1

REPORT INFORMATION
  Report Type: Spontaneous
  Country: US (occurrence: US)
  Receive Date: 20190103
  Receipt Date: 20190103
  Transmission Date: 20190417
  Serious: No
  Sender: FDA-Public Use
  Company Number: US-SHIRE-US201850146

PATIENT
  Age: 28 Year
  Sex: Male
  Weight: 88.44 kg

DRUGS (1)
  1. ADDERALL XR [Suspect]
     Active Substance: AMPHETAMINE ASPARTATE\AMPHETAMINE SULFATE\DEXTROAMPHETAMINE SACCHARATE\DEXTROAMPHETAMINE SULFATE
     Indication: ATTENTION DEFICIT/HYPERACTIVITY DISORDER
     Dosage: 25 MG, 1X/DAY:QD
     Route: 048

REACTIONS (3)
  - Product physical issue [Unknown]
  - Inappropriate schedule of product administration [Unknown]
  - Lethargy [Unknown]

NARRATIVE: CASE EVENT DATE: 201812
